FAERS Safety Report 4451253-5 (Version None)
Quarter: 2004Q3

REPORT INFORMATION
  Report Type: 
  Country: None (occurrence: None)
  Receive Date: 20040913
  Receipt Date: 20040709
  Transmission Date: 20050211
  Serious: No
  Sender: FDA-Public Use
  Company Number: 2004-BP-05564BP

PATIENT
  Age: 75 Year
  Sex: Female

DRUGS (7)
  1. SPIRIVA [Suspect]
     Dosage: 18 MCG (18 MCG, OD), IH
     Route: 055
     Dates: start: 20040701
  2. EVISTA [Concomitant]
  3. SYNTHROID [Concomitant]
  4. BENAZEPRIL/HCTZ [Concomitant]
  5. CALCIUM [Concomitant]
  6. GLUCOSAMINE (GLUCOSAMINE) [Concomitant]
  7. ARTHROTEC [Concomitant]

REACTIONS (1)
  - ARTHRALGIA [None]
